FAERS Safety Report 26032073 (Version 1)
Quarter: 2025Q4

REPORT INFORMATION
  Report Type: Spontaneous
  Country: GB (occurrence: GB)
  Receive Date: 20251112
  Receipt Date: 20251112
  Transmission Date: 20260117
  Serious: Yes (Other)
  Sender: AUROBINDO
  Company Number: GB-MHRA-MED-202510311758097880-PRKBH

PATIENT
  Age: 28 Year
  Sex: Male
  Weight: 82 kg

DRUGS (2)
  1. SERTRALINE [Suspect]
     Active Substance: SERTRALINE HYDROCHLORIDE
     Indication: Generalised anxiety disorder
     Dosage: 100 MILLIGRAM
     Route: 065
     Dates: start: 20250601
  2. AMPHETAMINE [Concomitant]
     Active Substance: AMPHETAMINE
     Indication: Attention deficit hyperactivity disorder
     Dosage: UNK
     Route: 065
     Dates: start: 20230801

REACTIONS (1)
  - Anorgasmia [Not Recovered/Not Resolved]
